FAERS Safety Report 5060124-5 (Version None)
Quarter: 2006Q3

REPORT INFORMATION
  Report Type: 
  Country: None (occurrence: None)
  Receive Date: 20060718
  Receipt Date: 20060628
  Transmission Date: 20061208
  Serious: Yes (Hospitalization, Other)
  Sender: FDA-Public Use
  Company Number: GB200606005921

PATIENT
  Age: 73 Year
  Sex: Male

DRUGS (3)
  1. HUMALOG MIX 75/25 [Suspect]
     Indication: DIABETES MELLITUS
     Dosage: 76 + 56 U, EACH MORNING, UNK - SEE IMAGE
     Dates: start: 19980101
  2. HUMALOG MIX 75/25 [Suspect]
     Indication: DIABETES MELLITUS
     Dosage: 76 + 56 U, EACH MORNING, UNK - SEE IMAGE
     Dates: start: 19980101
  3. NITROGLYCERIN [Concomitant]

REACTIONS (3)
  - ANGINA PECTORIS [None]
  - CORONARY ARTERY BYPASS [None]
  - HYPERTENSION [None]
